FAERS Safety Report 5869450-0 (Version None)
Quarter: 2008Q3

REPORT INFORMATION
  Report Type: 
  Country: None (occurrence: None)
  Receive Date: 20080829
  Receipt Date: 20080821
  Transmission Date: 20090109
  Serious: Yes (Hospitalization)
  Sender: FDA-Public Use
  Company Number: 004036

PATIENT
  Age: 52 Year
  Sex: Male

DRUGS (16)
  1. PLETAL [Suspect]
     Indication: DRUG USE FOR UNKNOWN INDICATION
     Dosage: 100 MG, BID, UNK
  2. LEXAPRO [Suspect]
     Indication: DEPRESSION
     Dosage: 10 MG, QAM, UNK
  3. AMITRIPTLINE HYDROCHLORIDE TAB [Suspect]
     Indication: DEPRESSION
     Dosage: 25 MG, QPM, UNK
  4. VYTORIN [Suspect]
     Indication: BLOOD CHOLESTEROL INCREASED
     Dosage: 1 DF, BID,UNK
  5. COMBIVENT [Suspect]
     Indication: DYSPNOEA
     Dosage: 2 PUFF, TID, UNK
  6. SYNTHROID [Suspect]
     Indication: HYPOTHYROIDISM
     Dosage: 50 UNK, QAM, UNK
  7. CHANTIX [Suspect]
     Indication: SMOKING CESSATION THERAPY
     Dosage: UNK,UNK,UNK
  8. LISINOPRIL [Suspect]
     Dosage: 40 MG, QAM, UNK
  9. LYRICA [Suspect]
     Dosage: 100 MG, TID, UNK
  10. METFORMIN HCL [Suspect]
     Dosage: 500 MG,QAM,UNK
  11. METFORMIN HCL [Suspect]
     Dosage: 1000MG, QPM,UNK
  12. COREG [Suspect]
     Dosage: 25 MG, BID, UNK
  13. ISOSORBIDE [Suspect]
     Dosage: 10 MG, DAILY DOSE, UNK
  14. PLAVIX [Suspect]
     Dosage: 75 MG, DAILY DOSE, UNK
  15. ACTOS [Suspect]
     Dosage: 30 MG, DAILY DOSE, UNK
  16. OXYCODONE HCL [Suspect]
     Dosage: 5 MG, TID, UNK

REACTIONS (3)
  - HYPOTHYROIDISM [None]
  - MENTAL STATUS CHANGES [None]
  - OVERDOSE [None]
